FAERS Safety Report 4380845-7 (Version None)
Quarter: 2004Q2

REPORT INFORMATION
  Report Type: 
  Country: None (occurrence: None)
  Receive Date: 20040616
  Receipt Date: 20040603
  Transmission Date: 20050107
  Serious: Yes (Other)
  Sender: FDA-Public Use
  Company Number: 220001L04TUN

PATIENT
  Age: 15 Year
  Sex: Male

DRUGS (1)
  1. RECOMBINANT HUMAN GROWTH HORMONE (SOMATROPIN) [Suspect]
     Indication: GROWTH HORMONE DEFICIENCY

REACTIONS (2)
  - ASEPTIC NECROSIS BONE [None]
  - SCOLIOSIS [None]
